FAERS Safety Report 14003584 (Version 2)
Quarter: 2018Q2

REPORT INFORMATION
  Report Type: Report from Study
  Country: None (occurrence: US)
  Receive Date: 20170923
  Receipt Date: 20180510
  Transmission Date: 20180711
  Serious: Yes (Other)
  Sender: FDA-Public Use
  Company Number: US-ABBVIE-17P-163-2106071-00

PATIENT
  Age: 37 Year
  Sex: Female

DRUGS (5)
  1. NORVIR [Suspect]
     Active Substance: RITONAVIR
     Indication: ANTIRETROVIRAL THERAPY
     Dosage: 1 COURSE (NOT PRIOR TO CONCEPTION)
     Route: 048
     Dates: start: 20170621
  2. TRIUMEQ [Suspect]
     Active Substance: ABACAVIR SULFATE\DOLUTEGRAVIR SODIUM\LAMIVUDINE
     Indication: ANTIRETROVIRAL THERAPY
     Dosage: TABLET/CAPSULE (PRIOR TO CONCEPTION)
     Route: 048
     Dates: end: 20170621
  3. TRUVADA [Suspect]
     Active Substance: EMTRICITABINE\TENOFOVIR DISOPROXIL FUMARATE
     Indication: ANTIRETROVIRAL THERAPY
     Dosage: TABLET/CAPSULE (NOT PRIOR TO CONCEPTION)
     Route: 048
     Dates: start: 20170621
  4. REYATAZ [Suspect]
     Active Substance: ATAZANAVIR SULFATE
     Indication: ANTIRETROVIRAL THERAPY
     Dosage: 2 COURSES (NOT PRIOR TO CONCEPTION)
     Route: 048
     Dates: start: 20170621, end: 20171012
  5. REYATAZ [Suspect]
     Active Substance: ATAZANAVIR SULFATE
     Route: 048
     Dates: start: 20171012

REACTIONS (3)
  - Exposure during pregnancy [Unknown]
  - Live birth [Unknown]
  - Placental chorioangioma [Unknown]
